FAERS Safety Report 14686758 (Version 6)
Quarter: 2019Q3

REPORT INFORMATION
  Report Type: Report from Study
  Country: US (occurrence: US)
  Receive Date: 20180327
  Receipt Date: 20190702
  Transmission Date: 20191004
  Serious: Yes (Other)
  Sender: FDA-Public Use
  Company Number: US-ACTELION-A-NJ2018-169611

PATIENT
  Age: 73 Year
  Sex: Female
  Weight: 67.12 kg

DRUGS (1)
  1. OPSUMIT [Suspect]
     Active Substance: MACITENTAN
     Indication: PULMONARY ARTERIAL HYPERTENSION
     Dosage: 10 MG, QD
     Route: 048

REACTIONS (6)
  - Arthritis [Unknown]
  - Aphonia [Not Recovered/Not Resolved]
  - Breast cancer [Unknown]
  - Diarrhoea [Unknown]
  - Sinusitis [Unknown]
  - Psoriasis [Unknown]

NARRATIVE: CASE EVENT DATE: 201812
